FAERS Safety Report 19308482 (Version 1)
Quarter: 2021Q2

REPORT INFORMATION
  Report Type: Spontaneous
  Country: US (occurrence: US)
  Receive Date: 20210526
  Receipt Date: 20210526
  Transmission Date: 20210717
  Serious: Yes (Congenital Anomaly)
  Sender: FDA-Public Use
  Company Number: None

PATIENT
  Age: 38 Year
  Sex: Female
  Weight: 74.25 kg

DRUGS (6)
  1. INVOKANA [Suspect]
     Active Substance: CANAGLIFLOZIN
     Indication: DIABETES MELLITUS
     Route: 048
     Dates: start: 20190801, end: 20201014
  2. AMLODIPINE [Concomitant]
     Active Substance: AMLODIPINE BESYLATE
  3. DOXYLAMINE 25 MG [Concomitant]
  4. LORATADINE 10 MG [Concomitant]
     Active Substance: LORATADINE
  5. BENZONATATE 100 MG [Concomitant]
     Active Substance: BENZONATATE
  6. METFORMIN [Suspect]
     Active Substance: METFORMIN HYDROCHLORIDE

REACTIONS (7)
  - Pregnancy [None]
  - Exposure during pregnancy [None]
  - Diaphragmatic disorder [None]
  - Syndactyly [None]
  - Pseudosyndactyly [None]
  - Umbilical cord abnormality [None]
  - Multiple congenital abnormalities [None]

NARRATIVE: CASE EVENT DATE: 20201015
